FAERS Safety Report 21295580 (Version 1)
Quarter: 2022Q3

REPORT INFORMATION
  Report Type: Spontaneous
  Country: US (occurrence: None)
  Receive Date: 20220906
  Receipt Date: 20220906
  Transmission Date: 20221026
  Serious: No
  Sender: FDA-Public Use
  Company Number: 2022A296512

PATIENT
  Sex: Male
  Weight: 86.2 kg

DRUGS (3)
  1. BYDUREON BCISE [Suspect]
     Active Substance: EXENATIDE
     Indication: Type 2 diabetes mellitus
     Route: 058
  2. GLYBURIDE [Concomitant]
     Active Substance: GLYBURIDE
  3. METFORMIN HYDROCHLORIDE\PIOGLITAZONE HYDROCHLORIDE [Concomitant]
     Active Substance: METFORMIN HYDROCHLORIDE\PIOGLITAZONE HYDROCHLORIDE

REACTIONS (4)
  - Injection site haemorrhage [Unknown]
  - Incorrect dose administered [Unknown]
  - Device defective [Unknown]
  - Device delivery system issue [Unknown]
